FAERS Safety Report 25224726 (Version 1)
Quarter: 2025Q2

REPORT INFORMATION
  Report Type: Spontaneous
  Country: US (occurrence: None)
  Receive Date: 20250421
  Receipt Date: 20250421
  Transmission Date: 20250717
  Serious: Yes (Other)
  Sender: FDA-CTU
  Company Number: None

PATIENT
  Age: 59 Year
  Sex: Female

DRUGS (1)
  1. XDEMVY [Suspect]
     Active Substance: LOTILANER
     Dosage: 1 GTT DROP(S) TWICE A DAY OPHTHALMIC
     Route: 047
     Dates: end: 20250420

REACTIONS (2)
  - Headache [None]
  - Photophobia [None]

NARRATIVE: CASE EVENT DATE: 20250420
